FAERS Safety Report 10068758 (Version 2)
Quarter: 2014Q2

REPORT INFORMATION
  Report Type: Spontaneous
  Country: ES (occurrence: ES)
  Receive Date: 20140409
  Receipt Date: 20140409
  Transmission Date: 20141212
  Serious: Yes (Congenital Anomaly, Other)
  Sender: FDA-Public Use
  Company Number: ES-ASTELLAS-2014EU001811

PATIENT
  Age: 8 Month
  Sex: Male
  Weight: 7 kg

DRUGS (7)
  1. MYCAMINE [Suspect]
     Indication: URINARY TRACT INFECTION FUNGAL
     Dosage: 6 UNK, OTHER
     Route: 042
     Dates: start: 20140214, end: 20140227
  2. MYCAMINE [Suspect]
     Dosage: 8 UNK, OTHER
     Route: 042
     Dates: start: 20140227, end: 20140310
  3. MYCAMINE [Suspect]
     Dosage: 6 UNK, OTHER
     Route: 042
     Dates: start: 20140310, end: 20140314
  4. BICARBONATE [Concomitant]
     Dosage: UNK
     Route: 048
     Dates: start: 20140213
  5. IRON [Concomitant]
     Indication: ANAEMIA
     Dosage: UNK
     Route: 042
  6. VITAMIN D                          /00318501/ [Concomitant]
     Indication: ANAEMIA
     Dosage: UNK
     Route: 042
  7. ERYTHROPOIETIN [Concomitant]
     Indication: ANAEMIA
     Dosage: UNK
     Route: 030

REACTIONS (2)
  - Off label use [Unknown]
  - Eosinophilia [Recovering/Resolving]
